FAERS Safety Report 10094232 (Version 3)
Quarter: 2014Q2

REPORT INFORMATION
  Report Type: Spontaneous
  Country: US (occurrence: US)
  Receive Date: 20140422
  Receipt Date: 20140429
  Transmission Date: 20141212
  Serious: Yes (Other)
  Sender: FDA-Public Use
  Company Number: US-BEH-2013037006

PATIENT
  Age: 64 Year
  Sex: Female

DRUGS (4)
  1. HIZENTRA [Suspect]
     Indication: IMMUNODEFICIENCY COMMON VARIABLE
     Route: 058
     Dates: start: 20130716, end: 20130716
  2. HIZENTRA [Suspect]
     Dosage: 1 GM
     Route: 058
     Dates: start: 20140305, end: 20140305
  3. HIZENTRA [Suspect]
     Dosage: 2 GM
     Route: 058
     Dates: start: 20140305, end: 20140305
  4. NEXIUM [Concomitant]

REACTIONS (7)
  - Pain [Unknown]
  - Pyrexia [Unknown]
  - Pain in extremity [Recovered/Resolved]
  - Throat irritation [Recovered/Resolved]
  - Arthralgia [Recovered/Resolved]
  - Hot flush [Recovered/Resolved]
  - Rash [Recovered/Resolved]
